FAERS Safety Report 9027575 (Version 3)
Quarter: 2013Q3

REPORT INFORMATION
  Report Type: Spontaneous
  Country: US (occurrence: US)
  Receive Date: 20130124
  Receipt Date: 20130715
  Transmission Date: 20140515
  Serious: No
  Sender: FDA-Public Use
  Company Number: US-BIOGENIDEC-2013BI005490

PATIENT
  Age: 48 Year
  Sex: Female

DRUGS (4)
  1. TYSABRI [Suspect]
     Indication: MULTIPLE SCLEROSIS
     Route: 042
     Dates: start: 20120305
  2. PHENYTOIN SODIUM [Concomitant]
     Indication: CONVULSION PROPHYLAXIS
  3. NORTRIPTYLINE [Concomitant]
     Indication: HYPOAESTHESIA
     Dates: start: 2012
  4. NORTRIPTYLINE [Concomitant]
     Indication: PAIN IN EXTREMITY
     Dates: start: 2012

REACTIONS (9)
  - Dry mouth [Not Recovered/Not Resolved]
  - Vertigo [Recovered/Resolved]
  - Migraine [Recovered/Resolved]
  - Oral mucosal blistering [Not Recovered/Not Resolved]
  - Anxiety [Unknown]
  - Insomnia [Unknown]
  - Muscle spasticity [Unknown]
  - Dental caries [Recovered/Resolved]
  - Nasopharyngitis [Not Recovered/Not Resolved]
